FAERS Safety Report 6890428-2 (Version None)
Quarter: 2010Q3

REPORT INFORMATION
  Report Type: 
  Country: None (occurrence: None)
  Receive Date: 20100730
  Receipt Date: 20081021
  Transmission Date: 20110219
  Serious: No
  Sender: FDA-Public Use
  Company Number: US-PFIZER INC-2008089344

PATIENT
  Sex: Male
  Weight: 83.91 kg

DRUGS (6)
  1. LIPITOR [Suspect]
     Indication: CARDIAC FAILURE CONGESTIVE
     Dates: start: 20080601
  2. LASIX [Suspect]
     Dates: end: 20081020
  3. ACETYLSALICYLIC ACID SRT [Concomitant]
  4. LISINOPRIL [Concomitant]
  5. DIGOXIN [Concomitant]
  6. DRUG, UNSPECIFIED [Concomitant]

REACTIONS (1)
  - MUSCULAR WEAKNESS [None]
